FAERS Safety Report 9764321 (Version 1)
Quarter: 2013Q4

REPORT INFORMATION
  Report Type: Spontaneous
  Country: IT (occurrence: IT)
  Receive Date: 20131217
  Receipt Date: 20131217
  Transmission Date: 20140711
  Serious: Yes (Life-Threatening)
  Sender: FDA-Public Use
  Company Number: 2012SP000072

PATIENT
  Age: 44 Year
  Sex: Female

DRUGS (8)
  1. VANCOMYCIN [Suspect]
     Indication: ANAESTHESIA
     Dates: start: 20110209, end: 20110209
  2. ULTIVA [Suspect]
     Indication: ANAESTHESIA
     Dates: start: 20110209, end: 20110209
  3. MIDAZOLAM [Suspect]
     Indication: ANAESTHESIA
     Dates: start: 20110209, end: 20110209
  4. ROCEFIN [Suspect]
     Indication: ANAESTHESIA
     Dates: start: 20110209, end: 20110209
  5. DIPRIVAN [Suspect]
     Indication: ANAESTHESIA
     Dates: start: 20110209, end: 20110209
  6. FENTANEST [Suspect]
     Indication: ANAESTHESIA
     Dates: start: 20110209, end: 20110209
  7. NORCURON [Suspect]
     Indication: ANAESTHESIA
     Dates: start: 20110209, end: 20110209
  8. SEVORANE [Suspect]
     Indication: ANAESTHESIA
     Dates: start: 20110209, end: 20110209

REACTIONS (2)
  - Urticaria [Recovered/Resolved]
  - Wheezing [Recovered/Resolved]
